FAERS Safety Report 8563900 (Version 3)
Quarter: 2012Q4

REPORT INFORMATION
  Report Type: 
  Country: ES (occurrence: ES)
  Receive Date: 20120515
  Receipt Date: 20121030
  Transmission Date: 20130627
  Serious: Yes (Hospitalization, Other)
  Sender: FDA-Public Use
  Company Number: ES-ELI_LILLY_AND_COMPANY-ES201205002359

PATIENT
  Age: 67 Year
  Sex: Female
  Weight: 62 kg

DRUGS (9)
  1. FORSTEO [Suspect]
     Indication: OSTEOPOROSIS
     Dosage: 20 ug, qd
     Route: 058
     Dates: start: 20120323
  2. SIMVASTATINA [Concomitant]
     Indication: BLOOD CHOLESTEROL
     Dosage: 40 mg, qd
     Route: 048
  3. ATENOLOL [Concomitant]
     Indication: CARDIAC DISORDER
     Dosage: 50 mg, qd
     Route: 048
  4. LYRICA [Concomitant]
     Indication: PAIN
     Dosage: 75 mg, qd
     Route: 048
  5. CITALOPRAM [Concomitant]
     Indication: DEPRESSION
     Dosage: 1 DF, qd
     Route: 048
  6. ACIDO ACETIL SALICILICO [Concomitant]
     Indication: CARDIAC DISORDER
     Dosage: 100 mg, qd
     Route: 048
  7. OMEPRAZOL [Concomitant]
     Indication: PROPHYLAXIS
     Dosage: 20 mg, qd
     Route: 048
  8. PARACETAMOL [Concomitant]
     Indication: PAIN
     Dosage: 1 g, prn
     Route: 048
  9. VALS [Concomitant]
     Indication: CARDIAC DISORDER
     Dosage: 1.5 DF, qd
     Route: 048

REACTIONS (4)
  - Prosthesis implantation [Not Recovered/Not Resolved]
  - Device dislocation [Not Recovered/Not Resolved]
  - Fall [Not Recovered/Not Resolved]
  - Injury [Unknown]
